FAERS Safety Report 7955430 (Version 2)
Quarter: 2013Q1

REPORT INFORMATION
  Report Type: Spontaneous
  Country: US (occurrence: US)
  Receive Date: 20110523
  Receipt Date: 20130205
  Transmission Date: 20140127
  Serious: Yes (Hospitalization, Other)
  Sender: FDA-Public Use
  Company Number: US-ROCHE-778486

PATIENT
  Age: 39 None
  Sex: Female
  Weight: 57.66 kg

DRUGS (3)
  1. ACCUTANE [Suspect]
     Indication: PRODUCT USED FOR UNKNOWN INDICATION
     Route: 065
     Dates: start: 198310, end: 198404
  2. ACCUTANE [Suspect]
     Route: 065
     Dates: start: 200206, end: 200301
  3. CLARAVIS [Suspect]
     Indication: ACNE
     Dosage: START DATE: /JUL/2006
     Route: 065

REACTIONS (14)
  - Crohn^s disease [Unknown]
  - Inflammatory bowel disease [Unknown]
  - Anxiety [Unknown]
  - Osteonecrosis [Unknown]
  - Rheumatoid arthritis [Unknown]
  - Emotional distress [Not Recovered/Not Resolved]
  - Intestinal haemorrhage [Unknown]
  - Intestinal obstruction [Unknown]
  - Colitis ulcerative [Unknown]
  - Pyoderma gangrenosum [Unknown]
  - Depression [Unknown]
  - Blood triglycerides increased [Unknown]
  - Lip dry [Unknown]
  - Alopecia [Unknown]
